FAERS Safety Report 6033076-9 (Version None)
Quarter: 2009Q1

REPORT INFORMATION
  Report Type: 
  Country: None (occurrence: None)
  Receive Date: 20090109
  Receipt Date: 20090105
  Transmission Date: 20090719
  Serious: Yes (Hospitalization)
  Sender: FDA-Public Use
  Company Number: CH-ROCHE-606448

PATIENT
  Age: 75 Year
  Sex: Female

DRUGS (6)
  1. CLONAZEPAM [Suspect]
     Indication: PAIN
     Dosage: ACTION TAKEN: DRUG WITHDRAWN, DOSE: 1.5 MG 1X DAILY AT NIGHT.
     Route: 041
     Dates: start: 20081101
  2. HYDROMORPHONE HCL [Interacting]
     Indication: PAIN
     Dosage: ACTION TAKEN: DRUG WITHDRAWN, DOSE: 16-8-16 MG AND 3 X 4 MG/DAY AS REQUIRED.
     Route: 065
     Dates: start: 20081101
  3. TRYPTIZOL [Interacting]
     Indication: PAIN
     Dosage: ACTION TAKEN: DRUG WITHDRAWN, DOSE: 75 MG/DAY.
     Route: 048
     Dates: start: 20081101
  4. NEURONTIN [Interacting]
     Indication: PAIN
     Dosage: ACTION TAKEN: DRUG WITHDRAWN, DOSE: 3 X 300 MG/DAY.
     Route: 048
     Dates: start: 20081101
  5. CLONIDINE [Concomitant]
     Dates: start: 20060101
  6. BUPIVACAINE [Concomitant]
     Dates: start: 20060101

REACTIONS (3)
  - COMA [None]
  - DRUG INTERACTION [None]
  - RESPIRATORY ACIDOSIS [None]
